FAERS Safety Report 8307672-X (Version None)
Quarter: 2012Q2

REPORT INFORMATION
  Report Type: 
  Country: None (occurrence: None)
  Receive Date: 20120424
  Receipt Date: 20120424
  Transmission Date: 20120825
  Serious: Yes (Other)
  Sender: FDA-Public Use
  Company Number: None

PATIENT
  Sex: Female
  Weight: 125.64 kg

DRUGS (1)
  1. DEPO-PROVERA [Suspect]
     Indication: CONTRACEPTION
     Dosage: 1 SHOT
     Route: 051
     Dates: start: 20100624, end: 20100801

REACTIONS (4)
  - MENSTRUATION IRREGULAR [None]
  - MENORRHAGIA [None]
  - DYSMENORRHOEA [None]
  - THROMBOSIS [None]
